FAERS Safety Report 8021666-3 (Version None)
Quarter: 2012Q1

REPORT INFORMATION
  Report Type: 
  Country: None (occurrence: None)
  Receive Date: 20120104
  Receipt Date: 20120104
  Transmission Date: 20120608
  Serious: Yes (Other)
  Sender: FDA-Public Use
  Company Number: None

PATIENT
  Age: 16 Month
  Sex: Female
  Weight: 15.3 kg

DRUGS (1)
  1. SYNAGIS [Suspect]
     Indication: CHRONIC OBSTRUCTIVE PULMONARY DISEASE
     Dosage: 230MG
     Route: 030
     Dates: start: 20111231, end: 20111231

REACTIONS (3)
  - ERYTHEMA [None]
  - INJECTION SITE SWELLING [None]
  - URTICARIA [None]
